FAERS Safety Report 17214293 (Version 1)
Quarter: 2020Q1

REPORT INFORMATION
  Report Type: Spontaneous
  Country: US (occurrence: US)
  Receive Date: 20191228
  Receipt Date: 20191228
  Transmission Date: 20200409
  Serious: Yes (Hospitalization)
  Sender: FDA-Public Use
  Company Number: None

PATIENT
  Age: 4 Month
  Sex: Male
  Weight: 8.55 kg

DRUGS (6)
  1. FAMILY WELLNESS CHILDRENS IBUPROFEN [Suspect]
     Active Substance: IBUPROFEN
     Indication: TEETHING
     Dosage: ?          QUANTITY:3.75 ML;?
     Route: 048
     Dates: start: 20191204, end: 20191220
  2. FAMILY WELLNESS CHILDRENS IBUPROFEN [Suspect]
     Active Substance: IBUPROFEN
     Indication: PYREXIA
     Dosage: ?          QUANTITY:3.75 ML;?
     Route: 048
     Dates: start: 20191204, end: 20191220
  3. RESCUE INHALERS [Concomitant]
     Active Substance: UNSPECIFIED INGREDIENT
  4. IBUPROFEN. [Concomitant]
     Active Substance: IBUPROFEN
  5. NEBULIZER [Concomitant]
     Active Substance: DEVICE
  6. PREVACID [Concomitant]
     Active Substance: LANSOPRAZOLE

REACTIONS (2)
  - Respiratory disorder [None]
  - Crying [None]

NARRATIVE: CASE EVENT DATE: 20191205
